FAERS Safety Report 6263720-2 (Version None)
Quarter: 2009Q3

REPORT INFORMATION
  Report Type: 
  Country: None (occurrence: None)
  Receive Date: 20090710
  Receipt Date: 20090609
  Transmission Date: 20100115
  Serious: No
  Sender: FDA-Public Use
  Company Number: US-BAYER-200911793BCC

PATIENT
  Age: 93 Year
  Sex: Female
  Weight: 52 kg

DRUGS (2)
  1. ALEVE [Suspect]
     Indication: PROCEDURAL PAIN
     Dosage: TOTAL DAILY DOSE: 440 MG  UNIT DOSE: 220 MG
     Route: 048
     Dates: start: 20090605, end: 20090605
  2. METFORMIN HCL [Concomitant]
     Indication: DRUG USE FOR UNKNOWN INDICATION
     Route: 065

REACTIONS (1)
  - PROCEDURAL PAIN [None]
